FAERS Safety Report 17375527 (Version 1)
Quarter: 2020Q1

REPORT INFORMATION
  Report Type: Report from Study
  Country: None (occurrence: US)
  Receive Date: 20200206
  Receipt Date: 20200206
  Transmission Date: 20200409
  Serious: Yes (Other)
  Sender: FDA-Public Use
  Company Number: US-ABBVIE-20K-163-3260867-00

PATIENT
  Age: 15 Year
  Sex: Female

DRUGS (1)
  1. HUMIRA [Suspect]
     Active Substance: ADALIMUMAB
     Indication: HIDRADENITIS
     Dosage: CITRATE FREE
     Route: 058
     Dates: start: 20191121

REACTIONS (3)
  - Ovarian cyst ruptured [Recovered/Resolved]
  - Intentional product misuse [Not Recovered/Not Resolved]
  - Polycystic ovaries [Unknown]

NARRATIVE: CASE EVENT DATE: 202001
